FAERS Safety Report 7464705-0 (Version None)
Quarter: 2011Q2

REPORT INFORMATION
  Report Type: 
  Country: None (occurrence: None)
  Receive Date: 20110429
  Receipt Date: 20110429
  Transmission Date: 20111010
  Serious: Yes (Other)
  Sender: FDA-Public Use
  Company Number: None

PATIENT
  Age: 69 Year
  Sex: Female
  Weight: 73.4827 kg

DRUGS (2)
  1. LEVAQUIN [Suspect]
     Indication: PNEUMONIA
     Dosage: 1 TABLET 1 X 1DAY BY MOUTH
     Route: 048
     Dates: start: 20110408
  2. LEVAQUIN [Suspect]
     Indication: PNEUMONIA
     Dosage: 1 TABLET 1 X 1DAY BY MOUTH
     Route: 048
     Dates: start: 20110409

REACTIONS (4)
  - SYNCOPE [None]
  - HYPERHIDROSIS [None]
  - FALL [None]
  - DIZZINESS [None]
